FAERS Safety Report 5381763-8 (Version None)
Quarter: 2007Q3

REPORT INFORMATION
  Report Type: 
  Country: None (occurrence: None)
  Receive Date: 20070705
  Receipt Date: 20070705
  Transmission Date: 20080115
  Serious: No
  Sender: FDA-Public Use
  Company Number: None

PATIENT
  Age: 62 Year
  Sex: Female

DRUGS (5)
  1. HALFLYTELY [Suspect]
  2. PAXIL [Concomitant]
  3. LOVASTATIN [Concomitant]
  4. DETROL [Concomitant]
  5. CLARITIN [Concomitant]

REACTIONS (1)
  - COLITIS ISCHAEMIC [None]
